FAERS Safety Report 5622177-2 (Version None)
Quarter: 2008Q1

REPORT INFORMATION
  Report Type: 
  Country: None (occurrence: None)
  Receive Date: 20080206
  Receipt Date: 20080116
  Transmission Date: 20080703
  Serious: Yes (Hospitalization)
  Sender: FDA-Public Use
  Company Number: ENTC2008-0010

PATIENT
  Age: 77 Year
  Sex: Male

DRUGS (3)
  1. STALEVO 100 [Suspect]
     Dosage: 150 MG QID+ 100 MG QD
     Route: 048
     Dates: start: 20071123, end: 20071124
  2. DECAPEPTYL [Concomitant]
  3. XATRAL [Concomitant]

REACTIONS (9)
  - AGGRESSION [None]
  - BLOOD UREA INCREASED [None]
  - CONDITION AGGRAVATED [None]
  - CONFUSIONAL STATE [None]
  - DEHYDRATION [None]
  - DELIRIUM [None]
  - FEEDING DISORDER [None]
  - HALLUCINATION [None]
  - SUICIDE ATTEMPT [None]
